FAERS Safety Report 9128056 (Version 1)
Quarter: 2013Q1

REPORT INFORMATION
  Report Type: Report from Study
  Country: US (occurrence: US)
  Receive Date: 20130125
  Receipt Date: 20130125
  Transmission Date: 20140127
  Serious: Yes (Hospitalization, Other)
  Sender: FDA-Public Use
  Company Number: US-ROCHE-1182420

PATIENT
  Sex: Female
  Weight: 78.09 kg

DRUGS (6)
  1. TOCILIZUMAB [Suspect]
     Indication: RHEUMATOID ARTHRITIS
     Dosage: 2 DOSES 1 IN 1
     Route: 065
     Dates: start: 2012, end: 201206
  2. ADALIMUMAB [Suspect]
     Indication: RHEUMATOID ARTHRITIS
     Route: 065
     Dates: start: 2010, end: 2010
  3. PREDNISONE [Concomitant]
     Indication: RHEUMATOID ARTHRITIS
  4. DIOVAN [Concomitant]
     Indication: HYPERTENSION
  5. PHENERGAN [Concomitant]
  6. PREVACID [Concomitant]

REACTIONS (5)
  - Upper respiratory tract infection [Recovered/Resolved]
  - Hand deformity [Unknown]
  - Cyst [Unknown]
  - Panic attack [Unknown]
  - Drug ineffective [Unknown]
